FAERS Safety Report 8321569-0 (Version None)
Quarter: 2012Q2

REPORT INFORMATION
  Report Type: 
  Country: None (occurrence: None)
  Receive Date: 20120430
  Receipt Date: 20120423
  Transmission Date: 20120825
  Serious: Yes (Other)
  Sender: FDA-Public Use
  Company Number: DE-BAYER-2012-039526

PATIENT

DRUGS (1)
  1. BETASERON [Suspect]
     Dosage: UNKNOWN

REACTIONS (1)
  - ANAEMIA HAEMOLYTIC AUTOIMMUNE [None]
